FAERS Safety Report 13999617 (Version 1)
Quarter: 2017Q3

REPORT INFORMATION
  Report Type: Spontaneous
  Country: JP (occurrence: JP)
  Receive Date: 20170922
  Receipt Date: 20170922
  Transmission Date: 20171128
  Serious: Yes (Hospitalization, Other)
  Sender: FDA-Public Use
  Company Number: JP-NOVOPROD-563869

PATIENT
  Age: 57 Year
  Sex: Male
  Weight: 64 kg

DRUGS (6)
  1. TRESIBA CHU [Suspect]
     Active Substance: INSULIN DEGLUDEC
     Dosage: UNK
     Route: 042
     Dates: end: 20170707
  2. TRESIBA CHU [Suspect]
     Active Substance: INSULIN DEGLUDEC
     Indication: TYPE 1 DIABETES MELLITUS
     Dosage: 7 IU, QD
     Route: 058
     Dates: start: 201408
  3. THYRADIN S [Concomitant]
     Active Substance: LEVOTHYROXINE SODIUM
     Indication: PRODUCT USED FOR UNKNOWN INDICATION
     Route: 048
  4. NOVORAPID [Suspect]
     Active Substance: INSULIN ASPART
     Dosage: UNK
     Route: 041
     Dates: end: 20170707
  5. NOVORAPID [Suspect]
     Active Substance: INSULIN ASPART
     Indication: TYPE 1 DIABETES MELLITUS
     Dosage: 24 U, QD
     Route: 058
     Dates: start: 2009
  6. CORTRIL [Concomitant]
     Active Substance: HYDROCORTISONE
     Indication: PRODUCT USED FOR UNKNOWN INDICATION
     Route: 048

REACTIONS (2)
  - Overdose [Unknown]
  - Hypoglycaemic encephalopathy [Recovering/Resolving]

NARRATIVE: CASE EVENT DATE: 20170707
